FAERS Safety Report 21926670 (Version 1)
Quarter: 2023Q1

REPORT INFORMATION
  Report Type: Spontaneous
  Country: None (occurrence: US)
  Receive Date: 20230130
  Receipt Date: 20230130
  Transmission Date: 20230418
  Serious: No
  Sender: FDA-Public Use
  Company Number: US-SERB S.A.S.-2137243

PATIENT
  Sex: Male

DRUGS (1)
  1. CYANOKIT [Suspect]
     Active Substance: HYDROXOCOBALAMIN
     Indication: Cardiac operation
     Route: 065
     Dates: start: 20220519

REACTIONS (3)
  - Drug-device interaction [Unknown]
  - Serum colour abnormal [Unknown]
  - Product use in unapproved indication [Unknown]

NARRATIVE: CASE EVENT DATE: 20220519
